FAERS Safety Report 5517841-X (Version None)
Quarter: 2007Q4

REPORT INFORMATION
  Report Type: 
  Country: None (occurrence: None)
  Receive Date: 20071113
  Receipt Date: 20071030
  Transmission Date: 20080405
  Serious: Yes (Other)
  Sender: FDA-Public Use
  Company Number: 07-443

PATIENT
  Age: 69 Year
  Sex: Male
  Weight: 68.0396 kg

DRUGS (4)
  1. ALEVE [Suspect]
     Indication: ARTHRALGIA
     Dosage: 220 MG, PRN, ORAL, DAILY, ORAL
     Route: 048
     Dates: start: 20070807
  2. ALEVE [Suspect]
     Indication: ARTHRALGIA
     Dosage: 220 MG, PRN, ORAL, DAILY, ORAL
     Route: 048
     Dates: start: 20071012
  3. ZOLOFT [Concomitant]
  4. ULTRAM [Concomitant]

REACTIONS (4)
  - INSOMNIA [None]
  - THINKING ABNORMAL [None]
  - TREMOR [None]
  - WITHDRAWAL SYNDROME [None]
